FAERS Safety Report 4288936-6 (Version None)
Quarter: 2004Q1

REPORT INFORMATION
  Report Type: 
  Country: None (occurrence: None)
  Receive Date: 20040209
  Receipt Date: 20040130
  Transmission Date: 20041129
  Serious: Yes (Other)
  Sender: FDA-Public Use
  Company Number: PHBS2004CA01646

PATIENT
  Age: 49 Year
  Sex: Female

DRUGS (4)
  1. TEGRETOL-XR [Suspect]
     Dosage: 400 MG, UNK
     Dates: start: 19950101, end: 20010101
  2. LITHIUM CARBONATE [Concomitant]
     Dates: start: 19850101
  3. DIVALPROEX SODIUM [Concomitant]
     Dates: start: 19850101
  4. SEROQUEL [Concomitant]
     Dosage: UNK, UNK

REACTIONS (1)
  - OSTEOPOROSIS [None]
